FAERS Safety Report 4554842-2 (Version None)
Quarter: 2005Q1

REPORT INFORMATION
  Report Type: 
  Country: None (occurrence: None)
  Receive Date: 20041228
  Receipt Date: 20041014
  Transmission Date: 20050727
  Serious: No
  Sender: FDA-Public Use
  Company Number: IND-AE-04-SAN-006

PATIENT
  Age: 87 Year
  Sex: Female

DRUGS (5)
  1. SANCTURA [Suspect]
     Indication: HYPERTONIC BLADDER
     Dosage: 20 MG, BID, ORAL
     Route: 048
     Dates: start: 20040916, end: 20041006
  2. SANCTURA [Suspect]
     Indication: HYPERTONIC BLADDER
     Dosage: 30 MG, QD, ORAL
     Route: 048
     Dates: start: 20041007
  3. LANOXIN [Concomitant]
  4. CODEINE [Concomitant]
  5. PHENERGAN [Concomitant]

REACTIONS (1)
  - NAUSEA [None]
